FAERS Safety Report 6417600-X (Version None)
Quarter: 2009Q4

REPORT INFORMATION
  Report Type: 
  Country: None (occurrence: None)
  Receive Date: 20091028
  Receipt Date: 20091022
  Transmission Date: 20100525
  Serious: Yes (Other)
  Sender: FDA-Public Use
  Company Number: GB-ROCHE-663968

PATIENT
  Age: 12 Year
  Sex: Female

DRUGS (2)
  1. TAMIFLU [Suspect]
     Route: 065
     Dates: start: 20091019
  2. PARACETAMOL [Concomitant]

REACTIONS (4)
  - DIARRHOEA [None]
  - EPISTAXIS [None]
  - HALLUCINATION [None]
  - VOMITING [None]
